FAERS Safety Report 20505040 (Version 1)
Quarter: 2022Q1

REPORT INFORMATION
  Report Type: Spontaneous
  Country: CN (occurrence: None)
  Receive Date: 20220223
  Receipt Date: 20220223
  Transmission Date: 20220423
  Serious: Yes (Hospitalization)
  Sender: FDA-Public Use
  Company Number: CN-Orion Corporation ORION PHARMA-ENT 2022-0017

PATIENT
  Age: 66 Year
  Sex: Male

DRUGS (7)
  1. ENTACAPONE [Suspect]
     Active Substance: ENTACAPONE
     Indication: Parkinson^s disease
     Route: 065
  2. ENTACAPONE [Suspect]
     Active Substance: ENTACAPONE
     Route: 065
  3. ENTACAPONE [Suspect]
     Active Substance: ENTACAPONE
     Route: 065
  4. BENSERAZIDE\LEVODOPA [Suspect]
     Active Substance: BENSERAZIDE\LEVODOPA
     Indication: Parkinson^s disease
     Dosage: DOSE: 100 MG/400 MG ?FOR PAST 2 YEARS
     Route: 065
  5. BENSERAZIDE\LEVODOPA [Suspect]
     Active Substance: BENSERAZIDE\LEVODOPA
     Dosage: REDUCED TO THREE TIMES?3 TIMES A DAY
     Route: 065
  6. BENSERAZIDE\LEVODOPA [Suspect]
     Active Substance: BENSERAZIDE\LEVODOPA
     Dosage: DOSE: 50 MG/200 MG
     Route: 065
  7. TRIHEXYPHENIDYL [Suspect]
     Active Substance: TRIHEXYPHENIDYL
     Indication: Parkinson^s disease
     Dosage: DISCONTINUED
     Route: 065

REACTIONS (1)
  - Delirium [Recovered/Resolved]
